FAERS Safety Report 6063716-X (Version None)
Quarter: 2009Q1

REPORT INFORMATION
  Report Type: 
  Country: None (occurrence: None)
  Receive Date: 20090130
  Receipt Date: 20090113
  Transmission Date: 20090719
  Serious: Yes (Other)
  Sender: FDA-Public Use
  Company Number: B0556306A

PATIENT
  Age: 46 Year
  Sex: Male

DRUGS (1)
  1. BUPROPION HYDROCHLORIDE [Suspect]
     Indication: EX-TOBACCO USER
     Dosage: 150 MG / TWICE PER DAY / ORAL
     Route: 048

REACTIONS (5)
  - DEPRESSION [None]
  - PANIC REACTION [None]
  - PARANOIA [None]
  - SENSORY DISTURBANCE [None]
  - SUICIDAL IDEATION [None]
